FAERS Safety Report 21303101 (Version 2)
Quarter: 2022Q3

REPORT INFORMATION
  Report Type: Spontaneous
  Country: US (occurrence: US)
  Receive Date: 20220907
  Receipt Date: 20220908
  Transmission Date: 20221027
  Serious: No
  Sender: FDA-Public Use
  Company Number: US-BIOGEN-2022BI01152458

PATIENT
  Sex: Female

DRUGS (18)
  1. AVONEX PEN [Suspect]
     Active Substance: INTERFERON BETA-1A
     Indication: Multiple sclerosis
     Dosage: INJECT 1 PEN (30 MCG) INTRAMUSCULARLY ONCE WEEKLY
     Route: 050
     Dates: start: 20200925
  2. AVONEX PEN [Suspect]
     Active Substance: INTERFERON BETA-1A
  3. AVONEX PEN [Suspect]
     Active Substance: INTERFERON BETA-1A
  4. AVONEX PEN [Suspect]
     Active Substance: INTERFERON BETA-1A
  5. ASPIRIN [Concomitant]
     Active Substance: ASPIRIN
     Route: 050
  6. PILOCARPINE HYDROCHLORIDE [Concomitant]
     Active Substance: PILOCARPINE HYDROCHLORIDE
     Route: 050
  7. FUROSEMIDE [Concomitant]
     Active Substance: FUROSEMIDE
     Route: 050
  8. MIRTAZAPINE [Concomitant]
     Active Substance: MIRTAZAPINE
     Route: 050
  9. PREDNISONE [Concomitant]
     Active Substance: PREDNISONE
     Route: 050
  10. SILDENAFIL [Concomitant]
     Active Substance: SILDENAFIL
     Route: 050
  11. HYDROXYCHLOROQUINE SULFATE [Concomitant]
     Active Substance: HYDROXYCHLOROQUINE SULFATE
     Route: 050
  12. ACIDOPHILUS [Concomitant]
     Active Substance: LACTOBACILLUS ACIDOPHILUS
     Route: 050
  13. VENLAFAXINE HCL [Concomitant]
     Active Substance: VENLAFAXINE HYDROCHLORIDE
     Route: 050
  14. PROZAC [Concomitant]
     Active Substance: FLUOXETINE HYDROCHLORIDE
     Route: 050
  15. METHYLPHENIDATE HYDROCHLORIDE [Concomitant]
     Active Substance: METHYLPHENIDATE HYDROCHLORIDE
     Route: 050
  16. POTASSIUM CHLORIDE [Concomitant]
     Active Substance: POTASSIUM CHLORIDE
     Route: 050
  17. GABAPENTIN [Concomitant]
     Active Substance: GABAPENTIN
     Route: 050
  18. LEVOTHYROXINE SODIUM [Concomitant]
     Active Substance: LEVOTHYROXINE SODIUM
     Route: 050

REACTIONS (4)
  - Wrong technique in device usage process [Unknown]
  - Injection site extravasation [Unknown]
  - Injection site scar [Unknown]
  - Multiple sclerosis [Unknown]
